FAERS Safety Report 7084916-6 (Version None)
Quarter: 2010Q4

REPORT INFORMATION
  Report Type: 
  Country: None (occurrence: None)
  Receive Date: 20101105
  Receipt Date: 20101028
  Transmission Date: 20110411
  Serious: Yes (Hospitalization)
  Sender: FDA-Public Use
  Company Number: CH-WYE-G06875910

PATIENT
  Age: 60 Year
  Sex: Female

DRUGS (8)
  1. EFFEXOR [Interacting]
     Indication: DEPRESSION
     Dosage: SINCE LONG TIME, 225 MG DAILY THEN REDUCED TO 150 MG DAILY AND THEN TO 75 MG DAILY
     Route: 048
  2. INDERAL [Suspect]
     Dosage: SINCE LONG TERM, 10 MG TWICE DAILY, STOPPED ON 30-SEP-2010
  3. ETHANOL [Suspect]
     Dosage: UNKNOWN DOSE
  4. ANXIOLIT [Concomitant]
     Dosage: SINCE LONG TIME, 52.5 MG DAILY
  5. SERETIDE [Concomitant]
  6. NEXIUM [Concomitant]
     Dosage: 20 MG DAILY
  7. PASPERTIN [Interacting]
     Route: 048
     Dates: start: 20100924, end: 20101001
  8. ZOLPIDEM [Concomitant]
     Dosage: SINCE LONG TIME, 15 MG DAILY

REACTIONS (18)
  - ABDOMINAL PAIN [None]
  - ALCOHOL POISONING [None]
  - ANTIDEPRESSANT DRUG LEVEL INCREASED [None]
  - ASTHENIA [None]
  - DEPRESSED LEVEL OF CONSCIOUSNESS [None]
  - DRUG INTERACTION [None]
  - DRUG WITHDRAWAL SYNDROME [None]
  - FATIGUE [None]
  - GENERAL PHYSICAL HEALTH DETERIORATION [None]
  - HYPERREFLEXIA [None]
  - HYPOTENSION [None]
  - NAUSEA [None]
  - NERVOUSNESS [None]
  - NYSTAGMUS [None]
  - SEROTONIN SYNDROME [None]
  - TACHYCARDIA [None]
  - TREMOR [None]
  - VERTIGO [None]
